FAERS Safety Report 17005511 (Version 2)
Quarter: 2019Q4

REPORT INFORMATION
  Report Type: Report from Study
  Country: CN (occurrence: CN)
  Receive Date: 20191107
  Receipt Date: 20191205
  Transmission Date: 20200122
  Serious: Yes (Other)
  Sender: FDA-Public Use
  Company Number: CN-ROCHE-1391346

PATIENT
  Age: 40 Year
  Sex: Female
  Weight: 56.5 kg

DRUGS (5)
  1. AVASTIN [Suspect]
     Active Substance: BEVACIZUMAB
     Route: 041
     Dates: start: 20130505, end: 20170601
  2. AVASTIN [Suspect]
     Active Substance: BEVACIZUMAB
     Indication: COLON CANCER
     Route: 041
     Dates: start: 20130303
  3. AVASTIN [Suspect]
     Active Substance: BEVACIZUMAB
     Route: 041
     Dates: start: 20130303
  4. AVASTIN [Suspect]
     Active Substance: BEVACIZUMAB
     Route: 042
     Dates: end: 20190910
  5. AVASTIN [Suspect]
     Active Substance: BEVACIZUMAB
     Route: 041
     Dates: end: 20181030

REACTIONS (31)
  - White blood cell count decreased [Recovering/Resolving]
  - Diarrhoea [Unknown]
  - Granulocyte count decreased [Unknown]
  - Tracheitis [Recovered/Resolved]
  - Disease progression [Unknown]
  - Red blood cell count decreased [Unknown]
  - Lower limb fracture [Unknown]
  - Mood altered [Unknown]
  - Memory impairment [Unknown]
  - Brain injury [Unknown]
  - Asthenia [Unknown]
  - Protein urine present [Recovering/Resolving]
  - Abdominal pain [Unknown]
  - Fall [Unknown]
  - Bone marrow failure [Unknown]
  - Nasopharyngitis [Unknown]
  - White blood cell count decreased [Unknown]
  - Gastrointestinal disorder [Unknown]
  - Gastrointestinal pain [Unknown]
  - Gastrointestinal inflammation [Unknown]
  - Transaminases increased [Recovered/Resolved]
  - Discomfort [Unknown]
  - White blood cell count decreased [Not Recovered/Not Resolved]
  - Platelet count decreased [Unknown]
  - Decreased appetite [Unknown]
  - Abdominal pain [Unknown]
  - Poor quality sleep [Unknown]
  - Hypertension [Recovered/Resolved]
  - Pyrexia [Unknown]
  - Gastroenteritis radiation [Unknown]
  - Protein urine present [Unknown]

NARRATIVE: CASE EVENT DATE: 201412
